FAERS Safety Report 5429799-2 (Version None)
Quarter: 2007Q3

REPORT INFORMATION
  Report Type: 
  Country: None (occurrence: None)
  Receive Date: 20070829
  Receipt Date: 20070822
  Transmission Date: 20080115
  Serious: Yes (Hospitalization)
  Sender: FDA-Public Use
  Company Number: NO-PFIZER INC-2007070601

PATIENT
  Sex: Female

DRUGS (2)
  1. CETIRIZINE HCL [Suspect]
  2. LEVOCETIRIZINE [Suspect]
     Indication: FOOD ALLERGY
     Dates: start: 20031020, end: 20040428

REACTIONS (7)
  - DISTURBANCE IN ATTENTION [None]
  - DRY MOUTH [None]
  - DYSGEUSIA [None]
  - EATING DISORDER [None]
  - HEART RATE INCREASED [None]
  - PANIC DISORDER [None]
  - WEIGHT DECREASED [None]
